FAERS Safety Report 4617995-3 (Version None)
Quarter: 2005Q1

REPORT INFORMATION
  Report Type: 
  Country: None (occurrence: None)
  Receive Date: 20050324
  Receipt Date: 20041217
  Transmission Date: 20050727
  Serious: Yes (Death, Hospitalization)
  Sender: FDA-Public Use
  Company Number: GB-SANOFI-SYNTHELABO-F01200403944

PATIENT
  Sex: Male

DRUGS (13)
  1. OXALIPLATIN [Suspect]
     Indication: COLORECTAL CANCER METASTATIC
     Route: 042
  2. CAPECITABINE [Suspect]
     Dosage: 1800 MG TWICE DAILY FOR 2 WEEKS, Q3W
     Route: 048
  3. BEVACIZUMAB OR PLACEBO [Suspect]
     Route: 042
     Dates: start: 20040803, end: 20040803
  4. FLIXOTIDE [Concomitant]
  5. IBUPROFEN [Concomitant]
  6. FLUOXETINE [Concomitant]
     Route: 065
     Dates: end: 20040818
  7. METOCLOPRAMIDE [Concomitant]
     Route: 065
     Dates: end: 20040714
  8. CYCLIZINE [Concomitant]
     Route: 065
     Dates: end: 20040929
  9. DEXAMETHASONE [Concomitant]
     Route: 065
     Dates: end: 20040714
  10. LOPERAMIDE HCL [Concomitant]
     Route: 065
  11. PROCHLORPERAZINE MALEATE [Concomitant]
     Route: 065
     Dates: end: 20040615
  12. ZOPICLONE [Concomitant]
     Route: 065
     Dates: start: 20041015
  13. DOMPERIDONE [Concomitant]
     Route: 065
     Dates: start: 20041111

REACTIONS (7)
  - CELLULITIS [None]
  - CONFUSIONAL STATE [None]
  - DIARRHOEA [None]
  - DISSEMINATED INTRAVASCULAR COAGULATION [None]
  - DRUG INEFFECTIVE [None]
  - SEPSIS [None]
  - VOMITING [None]
